FAERS Safety Report 13818105 (Version 1)
Quarter: 2017Q3

REPORT INFORMATION
  Report Type: Spontaneous
  Country: US (occurrence: US)
  Receive Date: 20170731
  Receipt Date: 20170731
  Transmission Date: 20171127
  Serious: No
  Sender: FDA-Public Use
  Company Number: US-ROCHE-638030

PATIENT
  Age: 67 Year
  Sex: Female

DRUGS (2)
  1. BONIVA [Suspect]
     Active Substance: IBANDRONATE SODIUM
     Indication: OSTEOPOROSIS
     Dosage: DOSAGE FORM: 3 MG/3ML
     Route: 042
  2. MEPROBAMATE. [Concomitant]
     Active Substance: MEPROBAMATE
     Route: 065

REACTIONS (3)
  - Limb mass [Not Recovered/Not Resolved]
  - Injection site phlebitis [Unknown]
  - Infusion site extravasation [Unknown]

NARRATIVE: CASE EVENT DATE: 20090609
